FAERS Safety Report 10111002 (Version 1)
Quarter: 2014Q2

REPORT INFORMATION
  Report Type: Spontaneous
  Country: US (occurrence: None)
  Receive Date: 20140421
  Receipt Date: 20140421
  Transmission Date: 20141212
  Serious: No
  Sender: FDA-Public Use
  Company Number: AEGR000000337

PATIENT
  Age: 54 Year
  Sex: Female
  Weight: 65.8 kg

DRUGS (1)
  1. JUXTAPID (LOMITAPINE) CAPSULE [Suspect]
     Indication: TYPE IIA HYPERLIPIDAEMIA
     Dates: start: 20131018

REACTIONS (2)
  - Liver function test abnormal [None]
  - Headache [None]
